FAERS Safety Report 11137832 (Version 1)
Quarter: 2015Q2

REPORT INFORMATION
  Report Type: Spontaneous
  Country: DE (occurrence: DE)
  Receive Date: 20150526
  Receipt Date: 20150526
  Transmission Date: 20150821
  Serious: Yes (Life-Threatening)
  Sender: FDA-Public Use
  Company Number: DE-AUROBINDO-AUR-APL-2015-04592

PATIENT
  Age: 62 Year
  Sex: Female

DRUGS (1)
  1. QUETIAPINE 200MG [Suspect]
     Active Substance: QUETIAPINE
     Indication: DEPRESSION
     Dosage: 200 MG, DAILY
     Route: 048
     Dates: start: 201503, end: 20150519

REACTIONS (1)
  - Pancytopenia [Not Recovered/Not Resolved]

NARRATIVE: CASE EVENT DATE: 201503
